FAERS Safety Report 10670979 (Version 6)
Quarter: 2015Q2

REPORT INFORMATION
  Report Type: Spontaneous
  Country: GB (occurrence: None)
  Receive Date: 20141219
  Receipt Date: 20150609
  Transmission Date: 20150821
  Serious: Yes (Hospitalization)
  Sender: FDA-Public Use
  Company Number: KAD201412-001607

PATIENT
  Age: 73 Year
  Sex: Male
  Weight: 60 kg

DRUGS (21)
  1. TERLIPRESSIN (TERLIPRESSIN) [Concomitant]
  2. ALBUTEROL (ALBUTEROL) [Concomitant]
     Active Substance: ALBUTEROL
  3. ATROVENT (IPRATROPIUM BROMIDE, IPRATROPIUM BROMIDE MONOHYDRATE) [Concomitant]
  4. CIPROFLOXACIN (CIPROFLOXACIN) [Concomitant]
     Active Substance: CIPROFLOXACIN
  5. METRONIDAZOLE (METRONIDAZOLE) [Concomitant]
     Active Substance: METRONIDAZOLE
  6. NASEPTIN (NEOMYCIN SULFATE, CHLORHEXIDINE DIHYDROCHLORIDE, CHLORHEXIDINE HYDROCHLORIDE) [Concomitant]
  7. TAZOCIN (PIPERACILLIN SODIUM, TAZOBACTUM SODIUM) [Concomitant]
  8. PARACETAMOL (PARACETAMOL) [Concomitant]
     Active Substance: ACETAMINOPHEN
  9. VANCOMYCIN (VANCOMYCIN) [Concomitant]
     Active Substance: VANCOMYCIN
  10. SOVALDI [Suspect]
     Active Substance: SOFOSBUVIR
     Indication: HEPATITIS C
     Route: 048
     Dates: start: 20141022, end: 20141121
  11. ATORVASTATIN CALCIUM. [Concomitant]
     Active Substance: ATORVASTATIN CALCIUM
  12. FUROSEMIDE (FUROSEMIDE) [Concomitant]
     Active Substance: FUROSEMIDE
  13. OMEPRAZOLE (OMEPRAZOLE) [Concomitant]
     Active Substance: OMEPRAZOLE
  14. SPIRONOLACTONE (SPIRONOLACTONE) [Concomitant]
     Active Substance: SPIRONOLACTONE
  15. NEORECORMON (EPOETIN BETA (RCH)) [Concomitant]
  16. VITAMIN K (MENADIONE) [Concomitant]
  17. COAPROVEL (HYDROCHLOROTHIAZIDE, IRBESARTAN) [Concomitant]
  18. LERCANIDIPINE [Concomitant]
     Active Substance: LERCANIDIPINE
  19. RIBAVIRIN. [Suspect]
     Active Substance: RIBAVIRIN
     Indication: HEPATITIS C
     Dosage: INITIATED ONE WEEK AGO??
     Dates: start: 20141022, end: 20141103
  20. OLYSIO [Suspect]
     Active Substance: SIMEPREVIR
     Indication: HEPATITIS C
     Route: 048
     Dates: start: 20141103, end: 20141121
  21. SANDO-K (POTASSIUM CHLORIDE, POTASSIUM BICARBONATE) [Concomitant]

REACTIONS (19)
  - Renal impairment [None]
  - Lower respiratory tract infection [None]
  - Malaise [None]
  - Product quality issue [None]
  - Blood bilirubin increased [None]
  - Carotid artery disease [None]
  - Lung infection [None]
  - Liver disorder [None]
  - Off label use [None]
  - Pleural effusion [None]
  - Hepatic cancer recurrent [None]
  - Atelectasis [None]
  - Neoplasm recurrence [None]
  - Hepatic encephalopathy [None]
  - Haemoglobin decreased [None]
  - Hepatic failure [None]
  - Hepatic cirrhosis [None]
  - Ascites [None]
  - C-reactive protein decreased [None]

NARRATIVE: CASE EVENT DATE: 20141103
